FAERS Safety Report 9343183 (Version 1)
Quarter: 2013Q2

REPORT INFORMATION
  Report Type: Spontaneous
  Country: US (occurrence: US)
  Receive Date: 20130611
  Receipt Date: 20130611
  Transmission Date: 20140414
  Serious: Yes (Hospitalization, Other)
  Sender: FDA-Public Use
  Company Number: US-ASTRAZENECA-2012SE16591

PATIENT
  Age: 65 Year
  Sex: Female
  Weight: 97.5 kg

DRUGS (14)
  1. ZESTRIL [Suspect]
     Indication: BLOOD PRESSURE ABNORMAL
     Dosage: GENERIC
     Route: 065
  2. CRESTOR [Suspect]
     Indication: LIPIDS ABNORMAL
     Route: 048
     Dates: start: 2010
  3. LISINOPRIL/HCTZ [Suspect]
     Indication: BLOOD PRESSURE ABNORMAL
     Route: 065
     Dates: start: 2008
  4. ASPIRIN [Concomitant]
  5. CARVEDILOL [Concomitant]
     Indication: BLOOD PRESSURE ABNORMAL
     Route: 048
  6. COREG [Concomitant]
  7. GLIPIZIDE [Concomitant]
  8. LEVOTHYROXINE [Concomitant]
  9. LOSARTAN [Concomitant]
  10. NITROGLYCERIN [Concomitant]
  11. COZAAR [Concomitant]
     Indication: BLOOD PRESSURE ABNORMAL
     Route: 048
  12. POTASSIUM [Concomitant]
     Indication: BLOOD POTASSIUM DECREASED
     Route: 048
  13. LASIX [Concomitant]
     Indication: OEDEMA PERIPHERAL
     Route: 048
  14. IRON [Concomitant]
     Indication: HAEMOGLOBIN DECREASED
     Route: 048
     Dates: start: 201305

REACTIONS (6)
  - Polyp [Recovered/Resolved]
  - Intestinal polyp haemorrhage [Recovered/Resolved]
  - Fall [Unknown]
  - Hypotension [Unknown]
  - Cough [Recovered/Resolved]
  - Local swelling [Unknown]
